FAERS Safety Report 9010436 (Version 1)
Quarter: 2013Q1

REPORT INFORMATION
  Report Type: Spontaneous
  Country: US (occurrence: US)
  Receive Date: 20130109
  Receipt Date: 20130109
  Transmission Date: 20140127
  Serious: Yes (Death, Other)
  Sender: FDA-Public Use
  Company Number: US-ROCHE-1177411

PATIENT
  Sex: Male

DRUGS (4)
  1. RITUXAN [Suspect]
     Indication: NON-HODGKIN^S LYMPHOMA
     Dosage: FOR 8 CYCLES
     Route: 065
  2. CYCLOPHOSPHAMIDE [Concomitant]
     Dosage: FOR 8 CYCLES
     Route: 065
  3. VINCRISTINE [Concomitant]
     Dosage: FOR 8 CYCLES
     Route: 065
  4. PREDNISONE [Concomitant]
     Dosage: FOR 8 CYCLES
     Route: 065

REACTIONS (2)
  - Death [Fatal]
  - Glioblastoma [Unknown]
